FAERS Safety Report 4271970-X (Version None)
Quarter: 2004Q1

REPORT INFORMATION
  Report Type: 
  Country: None (occurrence: None)
  Receive Date: 20040115
  Receipt Date: 20011217
  Transmission Date: 20041129
  Serious: Yes (Other)
  Sender: FDA-Public Use
  Company Number: US-BRISTOL-MYERS SQUIBB COMPANY-11630621

PATIENT
  Age: 54 Year
  Sex: Female

DRUGS (11)
  1. ATORVASTATIN [Suspect]
     Dosage: MOST RECENT DOSE PRIOR TO EVENT WAS 29NOV01.
     Route: 048
     Dates: start: 20010116
  2. GATIFLOXACIN [Suspect]
     Dosage: MOST RECENT DOSE PRIOR TO EVENT WAS 29NOV01. DRUG WAS PERMANENTLY DISCONTINUED ON 04DEC01.
     Route: 048
     Dates: start: 20010202, end: 20011204
  3. ATENOLOL [Concomitant]
     Route: 048
     Dates: start: 20000701
  4. ASPIRIN [Concomitant]
     Route: 048
     Dates: start: 19840101
  5. LOTREL [Concomitant]
     Dosage: MULTI-INGREDIENT DOSAGE: WAS 5/20 MG DAILY.
     Route: 048
     Dates: start: 19840101
  6. MEDROXYPROGESTERONE [Concomitant]
     Route: 048
  7. ESTRADIOL [Concomitant]
     Route: 048
  8. HYDROCHLOROTHIAZIDE [Concomitant]
     Dosage: DOSAGE WAS 25/37.5 MG DAILY.
     Route: 048
     Dates: start: 19840101
  9. ACTOS [Concomitant]
     Route: 048
     Dates: start: 20010101
  10. CELEBREX [Concomitant]
     Route: 048
     Dates: start: 19950101
  11. GLUCOVANCE [Concomitant]
     Route: 048
     Dates: start: 20010101

REACTIONS (4)
  - BLOOD GLUCOSE INCREASED [None]
  - GLYCOSYLATED HAEMOGLOBIN INCREASED [None]
  - HYPERHIDROSIS [None]
  - HYPOGLYCAEMIA [None]
